FAERS Safety Report 4743575-5 (Version None)
Quarter: 2005Q3

REPORT INFORMATION
  Report Type: 
  Country: None (occurrence: None)
  Receive Date: 20050809
  Receipt Date: 20050727
  Transmission Date: 20060218
  Serious: Yes (Death)
  Sender: FDA-Public Use
  Company Number: 05H-028-0301316-00

PATIENT
  Age: 81 Year
  Sex: Male
  Weight: 100 kg

DRUGS (1)
  1. ATROPINE SULFATE [Suspect]
     Indication: CARDIAC ARREST
     Dosage: 1 MG, 1 DOSE, INTRAVENOUS PUSH
     Route: 042
     Dates: start: 20050722, end: 20050722

REACTIONS (1)
  - PHARMACEUTICAL PRODUCT COMPLAINT [None]
